FAERS Safety Report 7751459-3 (Version None)
Quarter: 2011Q3

REPORT INFORMATION
  Report Type: 
  Country: None (occurrence: None)
  Receive Date: 20110914
  Receipt Date: 20110905
  Transmission Date: 20111222
  Serious: Yes (Hospitalization)
  Sender: FDA-Public Use
  Company Number: PHHO2010FR11797

PATIENT
  Sex: Male

DRUGS (13)
  1. ZOLPIDEM [Concomitant]
  2. LEDERFOLIN [Concomitant]
     Dosage: 25 MG, UNK
     Route: 048
     Dates: start: 20100820, end: 20100829
  3. HYPER-CVAD [Suspect]
     Indication: ACUTE LYMPHOCYTIC LEUKAEMIA
     Dosage: UNK
     Dates: start: 20100719, end: 20110830
  4. NEXIUM [Concomitant]
     Dosage: 20 UNK, UNK
     Route: 048
     Dates: start: 20100810, end: 20100902
  5. SONDALIS HP [Concomitant]
     Dosage: 1000 UNK, UNK
     Route: 048
     Dates: start: 20100818
  6. CEFEPIME HYDROCHLORIDE [Concomitant]
  7. MYOLASTAM [Concomitant]
  8. MYOLASTAN [Concomitant]
     Dosage: 1 UNK, UNK
     Route: 048
     Dates: start: 20100818, end: 20100829
  9. AMBISOME [Concomitant]
  10. TRAMADOL HCL [Concomitant]
  11. IMATINIB MESYLATE [Suspect]
     Indication: ACUTE LYMPHOCYTIC LEUKAEMIA
     Dosage: UNK
     Route: 048
     Dates: start: 20100719, end: 20110830
  12. BACTRIM [Concomitant]
     Dosage: 1 CAPX3
     Route: 048
     Dates: start: 20100820, end: 20100829
  13. VALACYCLOVIR HYDROCHLORIDE [Concomitant]
     Dosage: 2CAP/5
     Route: 048
     Dates: start: 20100820

REACTIONS (9)
  - HEPATITIS E [None]
  - PULMONARY MASS [None]
  - COUGH [None]
  - LUNG DISORDER [None]
  - HYPOXIA [None]
  - JAUNDICE [None]
  - CYTOLYTIC HEPATITIS [None]
  - PYREXIA [None]
  - ASPERGILLOSIS [None]
